FAERS Safety Report 6165501-7 (Version None)
Quarter: 2009Q2

REPORT INFORMATION
  Report Type: 
  Country: None (occurrence: None)
  Receive Date: 20090423
  Receipt Date: 20090417
  Transmission Date: 20091009
  Serious: Yes (Hospitalization)
  Sender: FDA-Public Use
  Company Number: US-ASTRAZENECA-2008UW26505

PATIENT
  Age: 11202 Day
  Sex: Female
  Weight: 131.5 kg

DRUGS (7)
  1. SEROQUEL [Suspect]
     Indication: DEPRESSION
     Dosage: 25 MG, 100 MG TO 500 MG
     Route: 048
     Dates: start: 20020701
  2. SEROQUEL [Suspect]
     Indication: ANXIETY
     Dosage: 25 MG, 100 MG TO 500 MG
     Route: 048
     Dates: start: 20020701
  3. SEROQUEL [Suspect]
     Indication: BIPOLAR DISORDER
     Dosage: 25 MG, 100 MG TO 500 MG
     Route: 048
     Dates: start: 20020701
  4. LOVAZA [Concomitant]
     Dates: start: 20070601
  5. GEODON [Concomitant]
     Dates: start: 20041201, end: 20050301
  6. BUSPIRONE HCL [Concomitant]
  7. FLUOXETINE [Concomitant]

REACTIONS (7)
  - BLOOD CHOLESTEROL INCREASED [None]
  - HYPERKERATOSIS [None]
  - ILL-DEFINED DISORDER [None]
  - OBESITY [None]
  - TACHYCARDIA [None]
  - THYROID DISORDER [None]
  - TYPE 2 DIABETES MELLITUS [None]
